FAERS Safety Report 25944408 (Version 2)
Quarter: 2025Q4

REPORT INFORMATION
  Report Type: Spontaneous
  Country: EU (occurrence: EU)
  Receive Date: 20251021
  Receipt Date: 20251106
  Transmission Date: 20260118
  Serious: Yes (Life-Threatening, Hospitalization, Other)
  Sender: NOVARTIS
  Company Number: EU-002147023-NVSC2025DE159417

PATIENT
  Age: 8 Year
  Sex: Female
  Weight: 28.5 kg

DRUGS (5)
  1. MEKINIST [Suspect]
     Active Substance: TRAMETINIB DIMETHYL SULFOXIDE
     Indication: Embryonal rhabdomyosarcoma
     Dosage: UNK
     Route: 048
     Dates: start: 20240601, end: 2024
  2. MEKINIST [Suspect]
     Active Substance: TRAMETINIB DIMETHYL SULFOXIDE
     Dosage: UNK
     Route: 065
     Dates: start: 2024, end: 202508
  3. VINORELBINE [Suspect]
     Active Substance: VINORELBINE TARTRATE
     Indication: Embryonal rhabdomyosarcoma
     Dosage: UNK
     Route: 065
     Dates: start: 202310, end: 202508
  4. CYCLOPHOSPHAMIDE [Concomitant]
     Active Substance: CYCLOPHOSPHAMIDE
     Indication: Embryonal rhabdomyosarcoma
     Dosage: UNK
     Route: 065
     Dates: start: 202310, end: 202508
  5. IRINOTECAN [Concomitant]
     Active Substance: IRINOTECAN
     Indication: Embryonal rhabdomyosarcoma
     Dosage: UNK
     Route: 065
     Dates: start: 202310, end: 202508

REACTIONS (15)
  - Embryonal rhabdomyosarcoma [Not Recovered/Not Resolved]
  - Recurrent cancer [Not Recovered/Not Resolved]
  - Neoplasm [Not Recovered/Not Resolved]
  - Pyrexia [Recovered/Resolved]
  - Pyrexia [Recovered/Resolved]
  - Pyrexia [Recovered/Resolved]
  - Facial paralysis [Not Recovered/Not Resolved]
  - Vertebral lesion [Unknown]
  - Bone disorder [Unknown]
  - Inflammation [Recovered/Resolved]
  - Tympanic membrane hyperaemia [Unknown]
  - Otorrhoea [Unknown]
  - Auricular swelling [Unknown]
  - Erythema [Unknown]
  - Off label use [Unknown]

NARRATIVE: CASE EVENT DATE: 20240101
